FAERS Safety Report 17236835 (Version 1)
Quarter: 2020Q1

REPORT INFORMATION
  Report Type: Spontaneous
  Country: NL (occurrence: FR)
  Receive Date: 20200106
  Receipt Date: 20200106
  Transmission Date: 20200409
  Serious: Yes (Hospitalization)
  Sender: FDA-Public Use
  Company Number: FR-BAYER-2020-001339

PATIENT
  Age: 20 Year
  Sex: Female
  Weight: 55 kg

DRUGS (1)
  1. JASMINELLE [Suspect]
     Active Substance: DROSPIRENONE
     Indication: CONTRACEPTION
     Dosage: 21 DF
     Route: 048
     Dates: start: 20170705, end: 20191128

REACTIONS (1)
  - Meningioma [Not Recovered/Not Resolved]

NARRATIVE: CASE EVENT DATE: 20191128
